FAERS Safety Report 21454511 (Version 1)
Quarter: 2022Q4

REPORT INFORMATION
  Report Type: Spontaneous
  Country: US (occurrence: None)
  Receive Date: 20221013
  Receipt Date: 20221013
  Transmission Date: 20230113
  Serious: Yes (Death)
  Sender: FDA-Public Use
  Company Number: None

PATIENT
  Sex: Male

DRUGS (18)
  1. INLYTA [Suspect]
     Active Substance: AXITINIB
     Dosage: FREQUENCY : EVERY 12 HOURS;?
     Route: 048
     Dates: start: 20220901, end: 20220927
  2. aldactone [Concomitant]
  3. CLONIDINE [Concomitant]
  4. COENZYME Q10 [Concomitant]
     Active Substance: DIETARY SUPPLEMENT\UBIDECARENONE
  5. COREG [Concomitant]
  6. flonase [Concomitant]
  7. HYDRALAZINE [Concomitant]
  8. lasix [Concomitant]
  9. LEVOTHYROXINE [Concomitant]
  10. LIPITOR [Concomitant]
     Active Substance: ATORVASTATIN CALCIUM
  11. NORVASC [Concomitant]
     Active Substance: AMLODIPINE BESYLATE
  12. pepcid [Concomitant]
  13. ROCALTROL [Concomitant]
  14. SERTRALINE [Concomitant]
  15. SUTENT [Concomitant]
  16. tums [Concomitant]
  17. WARFARIN [Concomitant]
  18. ZOLPIDEM [Concomitant]

REACTIONS (1)
  - Death [None]
